FAERS Safety Report 18620588 (Version 1)
Quarter: 2020Q4

REPORT INFORMATION
  Report Type: Spontaneous
  Country: FR (occurrence: FR)
  Receive Date: 20201215
  Receipt Date: 20201215
  Transmission Date: 20210114
  Serious: Yes (Hospitalization)
  Sender: FDA-Public Use
  Company Number: FR-BAUSCH-BL-2020-036161

PATIENT
  Age: 75 Year
  Sex: Male
  Weight: 77 kg

DRUGS (3)
  1. CLAMOXYL (AMOXICILLIN SODIUM) [Suspect]
     Active Substance: AMOXICILLIN SODIUM
     Indication: ARTHRITIS BACTERIAL
     Route: 041
     Dates: start: 20201109
  2. CEFTRIAXONE BASE [Suspect]
     Active Substance: CEFTRIAXONE
     Indication: ARTHRITIS BACTERIAL
     Route: 042
     Dates: start: 20201108, end: 20201108
  3. GENTAMICINE [Suspect]
     Active Substance: GENTAMICIN
     Indication: ARTHRITIS BACTERIAL
     Route: 042
     Dates: start: 20201108, end: 20201108

REACTIONS (1)
  - Hepatitis cholestatic [Recovering/Resolving]

NARRATIVE: CASE EVENT DATE: 20201112
